FAERS Safety Report 4825122-2 (Version None)
Quarter: 2005Q4

REPORT INFORMATION
  Report Type: 
  Country: None (occurrence: None)
  Receive Date: 20051109
  Receipt Date: 20051109
  Transmission Date: 20060501
  Serious: Yes (Other)
  Sender: FDA-Public Use
  Company Number: None

PATIENT
  Age: 34 Year
  Sex: Female
  Weight: 47.1741 kg

DRUGS (4)
  1. DEMEROL [Suspect]
     Indication: BLADDER OBSTRUCTION
     Dosage: 25MG IV
     Route: 042
     Dates: start: 20050908
  2. LEVAQUIN [Concomitant]
  3. FENTANYL [Concomitant]
  4. TORADOL [Concomitant]

REACTIONS (1)
  - ERYTHEMA [None]
